FAERS Safety Report 15393953 (Version 1)
Quarter: 2018Q3

REPORT INFORMATION
  Report Type: Spontaneous
  Country: TW (occurrence: TW)
  Receive Date: 20180917
  Receipt Date: 20180917
  Transmission Date: 20181010
  Serious: Yes (Hospitalization, Other)
  Sender: FDA-Public Use
  Company Number: TW-ABBVIE-18K-153-2482852-00

PATIENT
  Age: 80 Year
  Sex: Female

DRUGS (1)
  1. ADALIMUMAB [Suspect]
     Active Substance: ADALIMUMAB
     Indication: RHEUMATOID ARTHRITIS
     Route: 058
     Dates: start: 20130711, end: 20180820

REACTIONS (10)
  - Feeling hot [Unknown]
  - Swelling face [Unknown]
  - Vertebral osteophyte [Unknown]
  - Interstitial lung disease [Unknown]
  - Osteoporosis [Unknown]
  - Cellulitis [Unknown]
  - Facial pain [Unknown]
  - Cellulitis [Recovering/Resolving]
  - Erythema [Unknown]
  - Aortic arteriosclerosis [Unknown]

NARRATIVE: CASE EVENT DATE: 20180904
